FAERS Safety Report 8104250-2 (Version None)
Quarter: 2012Q1

REPORT INFORMATION
  Report Type: 
  Country: None (occurrence: None)
  Receive Date: 20120130
  Receipt Date: 20120118
  Transmission Date: 20120608
  Serious: Yes (Other)
  Sender: FDA-Public Use
  Company Number: US-BAYER-2011-049530

PATIENT
  Age: 37 Year
  Sex: Female
  Weight: 101.13 kg

DRUGS (13)
  1. DROSPIRENONE AND ETHINYL ESTRADIOL [Suspect]
     Dosage: UNK
     Dates: start: 20090716
  2. WELLBUTRIN [Concomitant]
     Dosage: 150 MG, DAILY
     Route: 048
  3. DROSPIRENONE AND ETHINYL ESTRADIOL [Suspect]
     Indication: DEPRESSION
     Dosage: UNK
     Dates: start: 20090328
  4. DROSPIRENONE AND ETHINYL ESTRADIOL [Suspect]
     Dosage: UNK
     Dates: start: 20090916
  5. DROSPIRENONE AND ETHINYL ESTRADIOL [Suspect]
     Dosage: UNK
     Dates: start: 20100201
  6. DROSPIRENONE AND ETHINYL ESTRADIOL [Suspect]
     Dosage: UNK
     Dates: start: 20100105
  7. IBUPROFEN [Concomitant]
  8. DROSPIRENONE AND ETHINYL ESTRADIOL [Suspect]
     Indication: MOOD SWINGS
     Dosage: UNK
     Dates: start: 20090102
  9. BENICAR [Concomitant]
     Indication: HYPERTENSION
     Dosage: 20 MG, DAILY
     Route: 048
     Dates: start: 20060101
  10. DROSPIRENONE AND ETHINYL ESTRADIOL [Suspect]
     Indication: CONTRACEPTION
     Dosage: UNK
     Dates: start: 20080923
  11. EXCEDRIN (MIGRAINE) [Concomitant]
  12. PRISTIQ [Concomitant]
     Indication: DEPRESSION
     Dosage: UNK
     Dates: start: 20080101, end: 20100101
  13. IMITREX [Concomitant]

REACTIONS (8)
  - GENERAL PHYSICAL HEALTH DETERIORATION [None]
  - NAUSEA [None]
  - ABDOMINAL TENDERNESS [None]
  - CHOLELITHIASIS [None]
  - CHOLECYSTITIS [None]
  - EMOTIONAL DISTRESS [None]
  - ANXIETY [None]
  - ABDOMINAL PAIN UPPER [None]
